FAERS Safety Report 6752119-8 (Version None)
Quarter: 2010Q2

REPORT INFORMATION
  Report Type: 
  Country: None (occurrence: None)
  Receive Date: 20100602
  Receipt Date: 20100528
  Transmission Date: 20101027
  Serious: Yes (Life-Threatening, Hospitalization, Other)
  Sender: FDA-Public Use
  Company Number: JP-ELI_LILLY_AND_COMPANY-JP201005007834

PATIENT
  Age: 76 Year
  Sex: Male

DRUGS (10)
  1. ALIMTA [Suspect]
     Dosage: 500 MG/M2, OTHER
     Route: 042
     Dates: start: 20100514, end: 20100514
  2. PANVITAN [Concomitant]
     Dosage: 1 G, DAILY (1/D)
     Route: 048
  3. ASPIRIN [Concomitant]
     Dosage: 100 MG, DAILY (1/D)
     Route: 048
  4. ATORVASTATIN [Concomitant]
     Dosage: 2 D/F, DAILY (1/D)
     Route: 048
  5. FRANDOL [Concomitant]
     Dosage: 1 D/F, DAILY (1/D)
     Route: 062
  6. LOXONIN [Concomitant]
     Dosage: 120 MG, DAILY (1/D)
     Route: 048
  7. MUCOSTA [Concomitant]
     Dosage: 200 MG, DAILY (1/D)
     Route: 048
  8. TAKEPRON [Concomitant]
     Dosage: 1 D/F, DAILY (1/D)
     Route: 048
  9. MAGMITT [Concomitant]
     Dosage: 3 D/F, DAILY (1/D)
     Route: 048
  10. ALESION [Concomitant]
     Dosage: 1 D/F, DAILY (1/D)
     Route: 048

REACTIONS (5)
  - DECREASED APPETITE [None]
  - PLATELET COUNT DECREASED [None]
  - PULMONARY ALVEOLAR HAEMORRHAGE [None]
  - PYREXIA [None]
  - WHITE BLOOD CELL COUNT DECREASED [None]
